FAERS Safety Report 10860546 (Version 3)
Quarter: 2015Q3

REPORT INFORMATION
  Report Type: Spontaneous
  Country: US (occurrence: US)
  Receive Date: 20150223
  Receipt Date: 20150827
  Transmission Date: 20151125
  Serious: No
  Sender: FDA-Public Use
  Company Number: US-009507513-1502USA003246

PATIENT
  Age: 20 Year
  Sex: Female
  Weight: 55.33 kg

DRUGS (1)
  1. IMPLANON [Suspect]
     Active Substance: ETONOGESTREL
     Dosage: 1 ROD / THREE YEARS
     Route: 059
     Dates: start: 20120104, end: 20150205

REACTIONS (4)
  - Incorrect drug administration duration [Unknown]
  - Blood pressure abnormal [Unknown]
  - Device breakage [Recovered/Resolved]
  - Wrong technique in product usage process [Unknown]

NARRATIVE: CASE EVENT DATE: 20150107
